FAERS Safety Report 6976408-7 (Version None)
Quarter: 2010Q3

REPORT INFORMATION
  Report Type: 
  Country: None (occurrence: None)
  Receive Date: 20100910
  Receipt Date: 20100909
  Transmission Date: 20110219
  Serious: Yes (Life-Threatening, Hospitalization, Other)
  Sender: FDA-Public Use
  Company Number: PHFR2010GB01225

PATIENT
  Sex: Male

DRUGS (11)
  1. CLOZARIL [Suspect]
     Indication: SCHIZOPHRENIA
     Dosage: UNK
     Route: 048
     Dates: start: 20010701
  2. CLOZARIL [Suspect]
     Indication: PSYCHOTIC DISORDER
     Dosage: 350MG DAILY
     Route: 048
  3. CLOZARIL [Suspect]
     Dosage: 325MG DAILY
     Route: 048
  4. WARFARIN [Concomitant]
  5. VALPROATE SODIUM [Concomitant]
     Indication: PROPHYLAXIS
     Dosage: 1000MG
     Route: 048
  6. CIPRALAN [Concomitant]
     Indication: DEPRESSION
     Dosage: 10MG DAILY
     Route: 048
  7. ACETYLSALICYLIC ACID [Concomitant]
     Indication: MYOCARDIAL ISCHAEMIA
     Dosage: 75MG DAILY
     Route: 048
  8. BISOPROLOL [Concomitant]
     Dosage: 1.25MG DAILY
     Route: 048
  9. EZETIMIBE [Concomitant]
     Dosage: 10MG DAILY
     Route: 048
  10. OMEPRAZOLE [Concomitant]
     Indication: PEPTIC ULCER
     Dosage: 40MG DAILY
     Route: 048
  11. DIAZEPAM [Concomitant]
     Indication: ANXIETY
     Dosage: 4MG DAILY
     Route: 048

REACTIONS (4)
  - ANTIPSYCHOTIC DRUG LEVEL INCREASED [None]
  - AORTIC ANEURYSM [None]
  - CARDIAC DISORDER [None]
  - MYOCARDIAL ISCHAEMIA [None]
